FAERS Safety Report 8836926 (Version 1)
Quarter: 2012Q4

REPORT INFORMATION
  Report Type: 
  Country: BR (occurrence: BR)
  Receive Date: 20121012
  Receipt Date: 20121012
  Transmission Date: 20130627
  Serious: Yes (Hospitalization, Other)
  Sender: FDA-Public Use
  Company Number: BR-AMGEN-BRASP2012064693

PATIENT
  Age: 68 Year
  Sex: Female
  Weight: 84 kg

DRUGS (8)
  1. ENBREL [Suspect]
     Indication: RHEUMATOID ARTHRITIS
     Dosage: 50 mg, once weekly
     Route: 058
  2. ARAVA [Concomitant]
     Dosage: UNK
  3. CAPTOPRIL [Concomitant]
     Indication: HYPERTENSION
     Dosage: UNK UNK, UNK
  4. LASILACTONA [Concomitant]
     Dosage: UNK UNK, UNK
  5. DAFLON                             /00426001/ [Concomitant]
     Dosage: UNK UNK, UNK
  6. AAS [Concomitant]
     Indication: THROMBOSIS
     Dosage: UNK UNK, UNK
  7. LASIX                              /00032601/ [Concomitant]
     Indication: HYPERTENSION
     Dosage: UNK
  8. SIMVASTATIN [Concomitant]
     Indication: BLOOD CHOLESTEROL INCREASED
     Dosage: UNK

REACTIONS (2)
  - Decreased immune responsiveness [Unknown]
  - Herpes virus infection [Unknown]
